FAERS Safety Report 22016738 (Version 10)
Quarter: 2025Q4

REPORT INFORMATION
  Report Type: Report from Study
  Country: US (occurrence: US)
  Receive Date: 20230221
  Receipt Date: 20251231
  Transmission Date: 20260117
  Serious: No
  Sender: PFIZER
  Company Number: US-PFIZER INC-PV202300031875

PATIENT
  Age: 66 Year
  Sex: Female
  Weight: 68.934 kg

DRUGS (1)
  1. PREMARIN [Suspect]
     Active Substance: ESTROGENS, CONJUGATED
     Indication: Hormone replacement therapy
     Dosage: 1.25 MG, DAILY
     Dates: start: 1986

REACTIONS (2)
  - Bronchitis chronic [Unknown]
  - Asthma [Unknown]
